FAERS Safety Report 13670944 (Version 1)
Quarter: 2017Q2

REPORT INFORMATION
  Report Type: Spontaneous
  Country: US (occurrence: US)
  Receive Date: 20170620
  Receipt Date: 20170620
  Transmission Date: 20170830
  Serious: No
  Sender: FDA-Public Use
  Company Number: US-ROCHE-1129469

PATIENT
  Sex: Female

DRUGS (4)
  1. CARMUSTINE [Concomitant]
     Active Substance: CARMUSTINE
  2. LOMUSTINE. [Concomitant]
     Active Substance: LOMUSTINE
  3. XELODA [Suspect]
     Active Substance: CAPECITABINE
     Indication: BRAIN NEOPLASM MALIGNANT
     Route: 065
  4. TEMODAR [Concomitant]
     Active Substance: TEMOZOLOMIDE

REACTIONS (2)
  - Treatment failure [Unknown]
  - Neoplasm progression [Unknown]
